FAERS Safety Report 17527851 (Version 5)
Quarter: 2022Q1

REPORT INFORMATION
  Report Type: Report from Study
  Country: US (occurrence: US)
  Receive Date: 20200311
  Receipt Date: 20220124
  Transmission Date: 20220423
  Serious: Yes (Other)
  Sender: FDA-Public Use
  Company Number: None

PATIENT
  Sex: Male

DRUGS (1)
  1. TRAVATAN Z [Suspect]
     Active Substance: TRAVOPROST
     Indication: Product used for unknown indication
     Dosage: UNK
     Route: 065

REACTIONS (5)
  - Multiple sclerosis [Unknown]
  - Glaucoma [Unknown]
  - Speech disorder [Unknown]
  - Eye pain [Unknown]
  - Product dose omission issue [Unknown]
